FAERS Safety Report 24211881 (Version 1)
Quarter: 2024Q3

REPORT INFORMATION
  Report Type: Spontaneous
  Country: US (occurrence: US)
  Receive Date: 20240814
  Receipt Date: 20240814
  Transmission Date: 20241016
  Serious: No
  Sender: ELI LILLY AND CO
  Company Number: US-ELI_LILLY_AND_COMPANY-US202401008928

PATIENT
  Age: 81 Year
  Sex: Female

DRUGS (2)
  1. FORTEO [Suspect]
     Active Substance: TERIPARATIDE
     Indication: Osteoporosis
     Dosage: 20 UG, DAILY
     Route: 065
     Dates: start: 202305
  2. FORTEO [Suspect]
     Active Substance: TERIPARATIDE
     Dosage: UNK UNK, UNKNOWN
     Route: 058

REACTIONS (14)
  - Product dose omission issue [Unknown]
  - Nervousness [Unknown]
  - Poor quality sleep [Unknown]
  - Gastrointestinal hypomotility [Unknown]
  - Personality change [Unknown]
  - Depression [Unknown]
  - Mental disorder [Unknown]
  - Injection site haemorrhage [Unknown]
  - Product storage error [Unknown]
  - Bradyphrenia [Unknown]
  - Incorrect dose administered by device [Unknown]
  - Jugular vein occlusion [Unknown]
  - Cardiac murmur [Unknown]
  - Stenosis [Unknown]
